FAERS Safety Report 21412122 (Version 1)
Quarter: 2022Q4

REPORT INFORMATION
  Report Type: Spontaneous
  Country: US (occurrence: US)
  Receive Date: 20221005
  Receipt Date: 20221005
  Transmission Date: 20230113
  Serious: No
  Sender: FDA-Public Use
  Company Number: US-MYLANLABS-2022M1097213

PATIENT
  Sex: Female
  Weight: 70.31 kg

DRUGS (1)
  1. ESTRADIOL TRANSDERMAL SYSTEM [Suspect]
     Active Substance: ESTRADIOL
     Indication: Hormone replacement therapy
     Dosage: 0.1 MILLIGRAM, QD
     Route: 062
     Dates: start: 20220719

REACTIONS (6)
  - Application site scab [Unknown]
  - Application site irritation [Unknown]
  - Application site erythema [Not Recovered/Not Resolved]
  - Application site injury [Recovering/Resolving]
  - Application site scar [Recovering/Resolving]
  - Product adhesion issue [Unknown]
